FAERS Safety Report 18479882 (Version 3)
Quarter: 2020Q4

REPORT INFORMATION
  Report Type: Spontaneous
  Country: US (occurrence: US)
  Receive Date: 20201109
  Receipt Date: 20201216
  Transmission Date: 20210114
  Serious: No
  Sender: FDA-Public Use
  Company Number: US-PFIZER INC-2020039275

PATIENT
  Age: 85 Year
  Sex: Male

DRUGS (7)
  1. RETACRIT [Suspect]
     Active Substance: EPOETIN ALFA-EPBX
     Indication: ANAEMIA
     Dosage: 20000 IU, EVERY 14 DAYS (2 ML SUBCUTANEOUSLY EVERY 2 WEEKS)
     Route: 058
  2. RETACRIT [Suspect]
     Active Substance: EPOETIN ALFA-EPBX
     Dosage: 60000 IU (EVERY OTHER WEEK)
  3. RETACRIT [Suspect]
     Active Substance: EPOETIN ALFA-EPBX
     Dosage: 40,000 (UNITS/ 1 ML)
  4. RETACRIT [Suspect]
     Active Substance: EPOETIN ALFA-EPBX
     Dosage: 60000 IU (INJECT 60,000 UNITS TOTAL EVERY 2 WEEKS (2 X 10,000 UNIT VIALS PLUS 1 X 40,000 UNIT VIAL))
  5. RETACRIT [Suspect]
     Active Substance: EPOETIN ALFA-EPBX
     Indication: CHRONIC KIDNEY DISEASE
     Dosage: 10000 IU
  6. RETACRIT [Suspect]
     Active Substance: EPOETIN ALFA-EPBX
     Dosage: 1 ML [EVERY 2 WEEKS]
     Route: 058
  7. RETACRIT [Suspect]
     Active Substance: EPOETIN ALFA-EPBX
     Dosage: 40000 IU [40,000 (UNITS/ 1 ML )]

REACTIONS (1)
  - Therapeutic product effect incomplete [Unknown]
